FAERS Safety Report 9815784 (Version 1)
Quarter: 2014Q1

REPORT INFORMATION
  Report Type: Spontaneous
  Country: US (occurrence: US)
  Receive Date: 20140114
  Receipt Date: 20140114
  Transmission Date: 20141002
  Serious: Yes (Other)
  Sender: FDA-Public Use
  Company Number: US-BAYER-2014-002150

PATIENT
  Age: 76 Year
  Sex: Female
  Weight: 61 kg

DRUGS (3)
  1. NEO-SYNEPHRINE COLD + SINUS EXTRA STRENGTH [Suspect]
     Indication: SINUS CONGESTION
     Dosage: 5-6 DOSE, PRN
     Route: 045
     Dates: end: 201401
  2. NEO-SYNEPHRINE COLD + SINUS EXTRA STRENGTH [Suspect]
     Indication: SINUS CONGESTION
     Dosage: UNK
     Dates: end: 201401
  3. NEO-SYNEPHRINE SEVERE SINUS CONGESTION SPRAY [Suspect]
     Dosage: 1 DOSE, BID
     Route: 045

REACTIONS (4)
  - Drug dependence [Not Recovered/Not Resolved]
  - Drug ineffective [None]
  - Incorrect dose administered [None]
  - Incorrect drug administration duration [None]
